FAERS Safety Report 7768036-0 (Version None)
Quarter: 2011Q3

REPORT INFORMATION
  Report Type: 
  Country: None (occurrence: None)
  Receive Date: 20110922
  Receipt Date: 20100819
  Transmission Date: 20111222
  Serious: Yes (Hospitalization)
  Sender: FDA-Public Use
  Company Number: US-ASTRAZENECA-2010SE39252

PATIENT
  Age: 55 Year
  Sex: Male

DRUGS (4)
  1. SEROQUEL [Suspect]
     Route: 048
     Dates: end: 20091201
  2. DEPAKOTE ER [Concomitant]
  3. ARTANE [Concomitant]
  4. STATIN DRUGS [Concomitant]

REACTIONS (4)
  - HYPERTENSION [None]
  - PYREXIA [None]
  - CONFUSIONAL STATE [None]
  - MUSCLE RIGIDITY [None]
